FAERS Safety Report 7744069-5 (Version None)
Quarter: 2011Q3

REPORT INFORMATION
  Report Type: 
  Country: None (occurrence: None)
  Receive Date: 20110912
  Receipt Date: 20110905
  Transmission Date: 20111222
  Serious: Yes (Other)
  Sender: FDA-Public Use
  Company Number: DE-PFIZER INC-2011207467

PATIENT
  Age: 29 Year
  Sex: Male

DRUGS (1)
  1. VIAGRA [Suspect]

REACTIONS (5)
  - HEMIPLEGIA [None]
  - FEELING ABNORMAL [None]
  - MUSCLE TWITCHING [None]
  - CARDIAC DISORDER [None]
  - PRURITUS [None]
